FAERS Safety Report 9192527 (Version 1)
Quarter: 2013Q1

REPORT INFORMATION
  Report Type: Spontaneous
  Country: US (occurrence: None)
  Receive Date: 20120703
  Receipt Date: 20120703
  Transmission Date: 20140127
  Serious: Yes (Other)
  Sender: FDA-Public Use
  Company Number: PHEH2012US009636

PATIENT
  Age: 36 Year
  Sex: Female
  Weight: 61.2 kg

DRUGS (2)
  1. GILENYA (FTY)CAPSULE, 0.5MG [Suspect]
     Indication: MULTIPLE SCLEROSIS
     Route: 048
     Dates: start: 20120507, end: 20120507
  2. DEXIDRINE (DEXAFETAMINE SULFATE) 10 MG [Concomitant]

REACTIONS (5)
  - Atrioventricular block second degree [None]
  - Atrioventricular block first degree [None]
  - Headache [None]
  - Bradycardia [None]
  - Electrocardiogram PR prolongation [None]
